FAERS Safety Report 9806799 (Version 1)
Quarter: 2014Q1

REPORT INFORMATION
  Report Type: Spontaneous
  Country: AU (occurrence: AU)
  Receive Date: 20140109
  Receipt Date: 20140109
  Transmission Date: 20141002
  Serious: Yes (Other)
  Sender: FDA-Public Use
  Company Number: AU-ROCHE-1331174

PATIENT
  Sex: Female

DRUGS (3)
  1. HERCEPTIN [Suspect]
     Indication: HER-2 POSITIVE BREAST CANCER
     Route: 065
     Dates: end: 201210
  2. CARBOPLATIN [Concomitant]
     Indication: HER-2 POSITIVE BREAST CANCER
     Route: 065
     Dates: end: 201210
  3. TAXOTERE [Concomitant]
     Indication: HER-2 POSITIVE BREAST CANCER
     Route: 065
     Dates: end: 201210

REACTIONS (1)
  - Breast cancer metastatic [Unknown]
